FAERS Safety Report 14561406 (Version 1)
Quarter: 2018Q1

REPORT INFORMATION
  Report Type: Spontaneous
  Country: US (occurrence: US)
  Receive Date: 20180222
  Receipt Date: 20180222
  Transmission Date: 20180509
  Serious: No
  Sender: FDA-Public Use
  Company Number: US-PFIZER INC-2018075100

PATIENT
  Age: 70 Year
  Sex: Male

DRUGS (14)
  1. LIPITOR [Concomitant]
     Active Substance: ATORVASTATIN CALCIUM
     Dosage: UNK
  2. CLARITIN [Concomitant]
     Active Substance: LORATADINE
     Dosage: UNK
  3. ELIQUIS [Concomitant]
     Active Substance: APIXABAN
     Dosage: UNK
  4. VITAMIN D /00107901/ [Concomitant]
     Active Substance: ERGOCALCIFEROL
     Dosage: UNK
  5. NORCO [Concomitant]
     Active Substance: ACETAMINOPHEN\HYDROCODONE BITARTRATE
     Dosage: UNK
  6. CALCIUM [Concomitant]
     Active Substance: CALCIUM
     Dosage: UNK
  7. FLECAINIDE ACETATE. [Concomitant]
     Active Substance: FLECAINIDE ACETATE
     Dosage: UNK
  8. TURMERIC /01079602/ [Concomitant]
     Active Substance: HERBALS\TURMERIC
     Dosage: UNK
  9. LATANOPROST. [Concomitant]
     Active Substance: LATANOPROST
     Dosage: UNK
  10. MORPHINE SULFATE. [Suspect]
     Active Substance: MORPHINE SULFATE
     Dosage: UNK
  11. FLUTICASONE PROPIONATE. [Concomitant]
     Active Substance: FLUTICASONE PROPIONATE
     Dosage: UNK
  12. ELIGARD [Concomitant]
     Active Substance: LEUPROLIDE ACETATE
     Dosage: UNK
  13. METOPROLOL SUCCINATE. [Concomitant]
     Active Substance: METOPROLOL SUCCINATE
     Dosage: UNK
  14. XTANDI [Suspect]
     Active Substance: ENZALUTAMIDE
     Dosage: 160 MG, 1X/DAY
     Route: 048
     Dates: start: 20180111

REACTIONS (4)
  - Pollakiuria [Unknown]
  - Thirst [Unknown]
  - Peripheral swelling [Not Recovered/Not Resolved]
  - Dry mouth [Not Recovered/Not Resolved]
